FAERS Safety Report 24934644 (Version 1)
Quarter: 2025Q1

REPORT INFORMATION
  Report Type: Spontaneous
  Country: CH (occurrence: CH)
  Receive Date: 20250206
  Receipt Date: 20250206
  Transmission Date: 20250409
  Serious: No
  Sender: EXELIXIS
  Company Number: CH-BRISTOL-MYERS SQUIBB COMPANY-2024-164510

PATIENT
  Age: 57 Year

DRUGS (5)
  1. CABOMETYX [Suspect]
     Active Substance: CABOZANTINIB S-MALATE
     Indication: Metastatic renal cell carcinoma
  2. OPDIVO [Suspect]
     Active Substance: NIVOLUMAB
     Indication: Metastatic renal cell carcinoma
     Dates: start: 20240308
  3. OPDIVO [Suspect]
     Active Substance: NIVOLUMAB
     Dates: start: 20240322
  4. OPDIVO [Suspect]
     Active Substance: NIVOLUMAB
     Dates: start: 20240510
  5. OPDIVO [Suspect]
     Active Substance: NIVOLUMAB
     Dates: start: 20240524

REACTIONS (1)
  - Off label use [Unknown]
